FAERS Safety Report 4844927-5 (Version None)
Quarter: 2005Q4

REPORT INFORMATION
  Report Type: 
  Country: None (occurrence: None)
  Receive Date: 20051128
  Receipt Date: 20051114
  Transmission Date: 20060501
  Serious: Yes (Other)
  Sender: FDA-Public Use
  Company Number: USA0511112454

PATIENT
  Age: 42 Year
  Sex: Female
  Weight: 88 kg

DRUGS (6)
  1. CYMBALTA [Suspect]
     Indication: DEPRESSION
     Dosage: 60 MG, ORAL
     Route: 048
     Dates: start: 20050919, end: 20051010
  2. ULTRAM [Concomitant]
  3. METOPROLOL (METOPROLOL) [Concomitant]
  4. CATAPRES [Concomitant]
  5. DIAZIDE (GLICLAZIDE) [Concomitant]
  6. LISINOPRIL [Concomitant]

REACTIONS (8)
  - ABDOMINAL PAIN [None]
  - ALANINE AMINOTRANSFERASE INCREASED [None]
  - ASPARTATE AMINOTRANSFERASE INCREASED [None]
  - BLOOD ALKALINE PHOSPHATASE INCREASED [None]
  - BLOOD BILIRUBIN INCREASED [None]
  - NAUSEA [None]
  - RENAL CYST [None]
  - VOMITING [None]
